FAERS Safety Report 8686785 (Version 2)
Quarter: 2013Q4

REPORT INFORMATION
  Report Type: Spontaneous
  Country: US (occurrence: US)
  Receive Date: 20120727
  Receipt Date: 20131101
  Transmission Date: 20140711
  Serious: No
  Sender: FDA-Public Use
  Company Number: US-009507513-1110USA03639

PATIENT
  Age: 55 Year
  Sex: Female
  Weight: 59.87 kg

DRUGS (3)
  1. FOSAMAX [Suspect]
     Indication: OSTEOPOROSIS
     Dosage: 3 DOSES
     Route: 048
     Dates: start: 20110902, end: 20111020
  2. LEVOXYL [Concomitant]
     Indication: HYPOTHYROIDISM
     Dosage: 150 MG, QD
  3. CLARITIN-D [Concomitant]
     Indication: RHINITIS ALLERGIC
     Dosage: 10MG/240
     Route: 048

REACTIONS (7)
  - Throat irritation [Recovered/Resolved]
  - Arthralgia [Recovered/Resolved]
  - Local swelling [Recovered/Resolved]
  - Oropharyngeal pain [Recovered/Resolved]
  - Joint stiffness [Recovered/Resolved]
  - Abdominal discomfort [Recovered/Resolved]
  - Local swelling [Recovered/Resolved]
